FAERS Safety Report 5050565-4 (Version None)
Quarter: 2006Q3

REPORT INFORMATION
  Report Type: 
  Country: None (occurrence: None)
  Receive Date: 20060713
  Receipt Date: 20060530
  Transmission Date: 20061208
  Serious: Yes (Death)
  Sender: FDA-Public Use
  Company Number: JP-JPN-A200601807

PATIENT
  Age: 75 Year
  Sex: Female
  Weight: 45 kg

DRUGS (8)
  1. VALTREX [Suspect]
     Indication: HERPES ZOSTER
     Dosage: 1000MG VARIABLE DOSE
     Route: 048
     Dates: start: 20060518, end: 20060525
  2. DECADRON [Suspect]
     Indication: ASTHMA
     Dosage: .25MG PER DAY
     Route: 048
     Dates: start: 20000101
  3. FLUTIDE [Concomitant]
     Indication: ASTHMA
     Dosage: 200MCG PER DAY
     Route: 055
     Dates: start: 20000101
  4. CLEANAL [Concomitant]
     Indication: ASTHMA
     Dosage: 1200MG PER DAY
     Route: 048
     Dates: start: 20000101
  5. UNIPHYL [Concomitant]
     Indication: ASTHMA
     Dosage: 400MCG PER DAY
     Route: 048
     Dates: start: 20000101
  6. MICARDIS [Concomitant]
     Indication: HYPERTENSION
     Dosage: 20MG PER DAY
     Route: 048
     Dates: start: 20031110
  7. DOGMATYL [Concomitant]
     Indication: DEPRESSION
     Dosage: 150MG PER DAY
     Route: 048
     Dates: start: 20031006
  8. PRIMPERAN TAB [Concomitant]
     Indication: DEPRESSION
     Dosage: 3U PER DAY
     Route: 048
     Dates: start: 20050409

REACTIONS (11)
  - ANOREXIA [None]
  - ASTHENIA [None]
  - BLISTER [None]
  - DEPRESSED LEVEL OF CONSCIOUSNESS [None]
  - MUSCULAR WEAKNESS [None]
  - NAUSEA [None]
  - PALLOR [None]
  - SCAB [None]
  - SUDDEN DEATH [None]
  - VIRAEMIA [None]
  - VIRAL MYOCARDITIS [None]
